FAERS Safety Report 9367418 (Version 1)
Quarter: 2013Q2

REPORT INFORMATION
  Report Type: Spontaneous
  Country: US (occurrence: US)
  Receive Date: 20130625
  Receipt Date: 20130625
  Transmission Date: 20140414
  Serious: No
  Sender: FDA-Public Use
  Company Number: US-ASTELLAS-2012US006726

PATIENT
  Age: 74 Year
  Sex: Female

DRUGS (3)
  1. VESICARE [Suspect]
     Indication: INCONTINENCE
     Dosage: UNK
     Route: 048
  2. VESICARE [Suspect]
     Dosage: 5 MG, UID/QD, IN THE EVENING
     Route: 048
     Dates: start: 201208
  3. UNSPECIFIED DIABETES MEDICATIONS [Concomitant]
     Indication: DIABETES MELLITUS
     Dosage: UNK
     Route: 065
     Dates: start: 2012

REACTIONS (3)
  - Memory impairment [Recovered/Resolved]
  - Blood glucose increased [Recovered/Resolved]
  - Confusional state [Recovered/Resolved]
